FAERS Safety Report 19995757 (Version 1)
Quarter: 2021Q4

REPORT INFORMATION
  Report Type: Other
  Country: US (occurrence: US)
  Receive Date: 20211025
  Receipt Date: 20211025
  Transmission Date: 20220303
  Serious: Yes (Other)
  Sender: FDA-Public Use
  Company Number: US-ROCHE-2939620

PATIENT
  Sex: Male

DRUGS (1)
  1. XELODA [Suspect]
     Active Substance: CAPECITABINE
     Indication: Colon cancer
     Dosage: TAKE 2 TABLET(S) BY MOUTH TWICE A DAY DAYS 1-14 EVERY 21 DAY(S)
     Route: 048

REACTIONS (1)
  - Blindness [Unknown]
